FAERS Safety Report 21177883 (Version 1)
Quarter: 2022Q3

REPORT INFORMATION
  Report Type: Spontaneous
  Country: US (occurrence: US)
  Receive Date: 20220805
  Receipt Date: 20220805
  Transmission Date: 20221026
  Serious: No
  Sender: FDA-Public Use
  Company Number: US-PFIZER INC-202201034073

PATIENT
  Sex: Female

DRUGS (2)
  1. DIFLUCAN [Suspect]
     Active Substance: FLUCONAZOLE
     Indication: Fungal infection
     Dosage: UNK
  2. TERCONAZOLE [Suspect]
     Active Substance: TERCONAZOLE
     Indication: Fungal infection
     Dosage: UNK (3 NIGHTS OF TERCONAZOLE CREAM IN HER VAGINA A WEEK)
     Route: 067

REACTIONS (2)
  - Drug ineffective [Unknown]
  - Pruritus [Unknown]
